FAERS Safety Report 15108622 (Version 5)
Quarter: 2019Q1

REPORT INFORMATION
  Report Type: Report from Study
  Country: None (occurrence: NL)
  Receive Date: 20180705
  Receipt Date: 20190220
  Transmission Date: 20190417
  Serious: Yes (Hospitalization)
  Sender: FDA-Public Use
  Company Number: NL-ABBVIE-17K-114-2109173-00

PATIENT
  Age: 70 Year
  Sex: Female
  Weight: 41 kg

DRUGS (9)
  1. SILVER NITRATE. [Concomitant]
     Active Substance: SILVER NITRATE
     Indication: STOMA SITE REACTION
  2. DUODOPA [Suspect]
     Active Substance: CARBIDOPA\LEVODOPA
     Dosage: MD: 4.5, CD: 3.2, ED: 2
     Route: 050
  3. DUODOPA [Suspect]
     Active Substance: CARBIDOPA\LEVODOPA
     Indication: PARKINSON^S DISEASE
     Dosage: MORNING DOSE: 7.8, CONTINUOUS DOSE: 3.8, EXTRA DOSE: 2.0
     Route: 050
  4. DUODOPA [Suspect]
     Active Substance: CARBIDOPA\LEVODOPA
     Dosage: MD 5.0, CD 3.4, ED 2.
     Route: 050
     Dates: start: 2017
  5. MOVICOLON [Concomitant]
     Active Substance: POLYETHYLENE GLYCOL 3350\POTASSIUM CHLORIDE\SODIUM BICARBONATE\SODIUM CHLORIDE
     Indication: ABNORMAL FAECES
     Route: 065
  6. DUODOPA [Suspect]
     Active Substance: CARBIDOPA\LEVODOPA
     Dosage: MD 5.0, CD 3.4, ED 2.
     Route: 050
     Dates: start: 2017
  7. TERRACORTIL [Concomitant]
     Indication: STOMA SITE REACTION
  8. DUODOPA [Suspect]
     Active Substance: CARBIDOPA\LEVODOPA
     Dosage: MORNING DOSE: 7.3, CONTINUOUS DOSE: 3.8, EXTRA DOSE: 2.0
     Route: 050
     Dates: end: 2017
  9. DUODOPA [Suspect]
     Active Substance: CARBIDOPA\LEVODOPA
     Dosage: MD: 1.2, CD: 2.9, ED: 1.5, CND: 1.4 24 HOUR ADMINISTRATION
     Route: 050

REACTIONS (34)
  - General physical health deterioration [Not Recovered/Not Resolved]
  - Freezing phenomenon [Not Recovered/Not Resolved]
  - Tardive dyskinesia [Unknown]
  - Fall [Unknown]
  - Abnormal dreams [Not Recovered/Not Resolved]
  - On and off phenomenon [Not Recovered/Not Resolved]
  - Contusion [Not Recovered/Not Resolved]
  - Hyperkinesia [Not Recovered/Not Resolved]
  - Drug effect incomplete [Recovered/Resolved]
  - Fall [Not Recovered/Not Resolved]
  - Fall [Unknown]
  - Weight decreased [Recovering/Resolving]
  - Decreased appetite [Not Recovered/Not Resolved]
  - Restlessness [Not Recovered/Not Resolved]
  - Tension [Not Recovered/Not Resolved]
  - Drug effect variable [Not Recovered/Not Resolved]
  - Memory impairment [Unknown]
  - Orthostatic hypertension [Not Recovered/Not Resolved]
  - Sleep disorder [Recovering/Resolving]
  - Dyskinesia [Not Recovered/Not Resolved]
  - Mood swings [Not Recovered/Not Resolved]
  - Balance disorder [Not Recovered/Not Resolved]
  - Abnormal faeces [Not Recovered/Not Resolved]
  - Weight decreased [Recovered/Resolved]
  - Affect lability [Not Recovered/Not Resolved]
  - Rib fracture [Not Recovered/Not Resolved]
  - On and off phenomenon [Recovered/Resolved]
  - On and off phenomenon [Not Recovered/Not Resolved]
  - Dyskinesia [Recovered/Resolved]
  - Device alarm issue [Unknown]
  - Depressed mood [Unknown]
  - Skin abrasion [Not Recovered/Not Resolved]
  - Emotional disorder [Not Recovered/Not Resolved]
  - Bradykinesia [Unknown]

NARRATIVE: CASE EVENT DATE: 2017
